FAERS Safety Report 12830241 (Version 2)
Quarter: 2017Q3

REPORT INFORMATION
  Report Type: Spontaneous
  Country: US (occurrence: US)
  Receive Date: 20161007
  Receipt Date: 20170928
  Transmission Date: 20171127
  Serious: No
  Sender: FDA-Public Use
  Company Number: US-SA-2016SA160430

PATIENT
  Age: 60 Year
  Sex: Female
  Weight: 142.43 kg

DRUGS (6)
  1. ADVIL [Concomitant]
     Active Substance: IBUPROFEN
  2. LOSARTAN. [Concomitant]
     Active Substance: LOSARTAN
  3. ALPRAZOLAM. [Concomitant]
     Active Substance: ALPRAZOLAM
  4. VITAMIN D [Concomitant]
     Active Substance: CHOLECALCIFEROL
  5. GABAPENTIN. [Concomitant]
     Active Substance: GABAPENTIN
  6. AUBAGIO [Suspect]
     Active Substance: TERIFLUNOMIDE
     Indication: MULTIPLE SCLEROSIS
     Route: 048
     Dates: start: 20130210, end: 201407

REACTIONS (1)
  - Diarrhoea [Recovered/Resolved]
